FAERS Safety Report 5040431-2 (Version None)
Quarter: 2006Q2

REPORT INFORMATION
  Report Type: 
  Country: None (occurrence: None)
  Receive Date: 20060630
  Receipt Date: 20060602
  Transmission Date: 20061013
  Serious: Yes (Hospitalization)
  Sender: FDA-Public Use
  Company Number: JP-NOVOPROD-253941

PATIENT
  Age: 24 Year
  Sex: Female
  Weight: 46 kg

DRUGS (14)
  1. NOVOLIN 70/30 [Suspect]
     Indication: DIABETES MELLITUS
     Dosage: 12 IU, QD
     Route: 058
     Dates: start: 20060526, end: 20060530
  2. NOVORAPID CHU [Suspect]
     Indication: DIABETES MELLITUS
     Dosage: 10 IU, QD
     Route: 058
     Dates: start: 20060526, end: 20060530
  3. NOVOLIN N [Suspect]
     Indication: DIABETES MELLITUS
     Dosage: 10
     Route: 058
     Dates: start: 20060518, end: 20060522
  4. ASPIRIN                            /00002701/ [Concomitant]
  5. NOVOLIN R [Suspect]
     Indication: DIABETES MELLITUS
     Dosage: 10 IU, QD
     Route: 058
     Dates: start: 20060523, end: 20060530
  6. NOVOLIN 30R CHU [Suspect]
     Indication: DIABETES MELLITUS
     Dosage: 10 IU, QD
     Route: 058
     Dates: start: 20060523, end: 20060525
  7. BASEN [Suspect]
     Indication: DRUG USE FOR UNKNOWN INDICATION
     Dosage: .9 MG, QD
     Route: 048
     Dates: start: 20060516, end: 20060530
  8. LIVALO [Suspect]
     Indication: DRUG USE FOR UNKNOWN INDICATION
     Dosage: 2 MG, QD
     Route: 048
     Dates: start: 20060522, end: 20060530
  9. DILTIAZEM HCL [Concomitant]
     Dosage: 100 MG, QD
     Route: 048
     Dates: start: 20051228
  10. DIOVAN                             /01319601/ [Concomitant]
     Dosage: 40 MG, QD
     Route: 048
     Dates: start: 20051228
  11. DORNER [Concomitant]
     Dosage: 120 UG, QD
     Route: 048
  12. ALFAROL [Concomitant]
     Dosage: 1 UG, QD
     Route: 048
     Dates: start: 20051217
  13. PREDONINE                          /00016201/ [Concomitant]
     Dosage: 25 MG, QD
     Route: 048
     Dates: start: 20060505
  14. LIPITOR [Concomitant]
     Dates: end: 20060521

REACTIONS (2)
  - HEPATIC ENZYME INCREASED [None]
  - HYPOGLYCAEMIA [None]
